FAERS Safety Report 8957089 (Version 1)
Quarter: 2012Q4

REPORT INFORMATION
  Report Type: 
  Country: US (occurrence: US)
  Receive Date: 20121211
  Receipt Date: 20121211
  Transmission Date: 20130627
  Serious: Yes (Other)
  Sender: FDA-Public Use
  Company Number: US-BAYER-2012-129188

PATIENT
  Age: 68 Year
  Sex: Female
  Weight: 61.22 kg

DRUGS (2)
  1. ALKA-SELTZER PLUS COLD + COUGH [Suspect]
     Indication: COMMON COLD
     Dosage: 2 DF, ONCE
     Route: 048
     Dates: start: 20121201, end: 20121201
  2. LOSARTAN [Concomitant]

REACTIONS (2)
  - Ageusia [Not Recovered/Not Resolved]
  - Anosmia [Not Recovered/Not Resolved]
